FAERS Safety Report 4714475-1 (Version None)
Quarter: 2005Q3

REPORT INFORMATION
  Report Type: 
  Country: None (occurrence: None)
  Receive Date: 20050714
  Receipt Date: 20050702
  Transmission Date: 20060218
  Serious: Yes (Other)
  Sender: FDA-Public Use
  Company Number: IT-BRISTOL-MYERS SQUIBB COMPANY-13024245

PATIENT
  Age: 100 Year
  Sex: Female

DRUGS (4)
  1. MAXIPIME [Suspect]
     Indication: PNEUMONIA
     Route: 030
     Dates: start: 20050620, end: 20050624
  2. LASIX [Concomitant]
  3. RAMIPRIL [Concomitant]
  4. ZAROXOLYN [Concomitant]

REACTIONS (2)
  - CONVULSION [None]
  - MYOCLONUS [None]
